FAERS Safety Report 10266153 (Version 1)
Quarter: 2014Q2

REPORT INFORMATION
  Report Type: Spontaneous
  Country: US (occurrence: US)
  Receive Date: 20140627
  Receipt Date: 20140627
  Transmission Date: 20141212
  Serious: Yes (Hospitalization)
  Sender: FDA-Public Use
  Company Number: US-B.I. PHARMACEUTICALS,INC./RIDGEFIELD-2014-BI-28852BP

PATIENT
  Sex: Male

DRUGS (5)
  1. SPIRIVA [Suspect]
     Indication: CHRONIC OBSTRUCTIVE PULMONARY DISEASE
     Dosage: 1 PUF
     Route: 065
     Dates: start: 201312
  2. ADVAIR [Suspect]
     Indication: CHRONIC OBSTRUCTIVE PULMONARY DISEASE
     Dosage: 2 PUF
     Route: 055
     Dates: start: 201304
  3. SALBUTAMOL SULPHATE [Concomitant]
     Route: 065
  4. NERVE MEDICATION [Concomitant]
     Route: 065
  5. PREDNISONE [Concomitant]
     Route: 065

REACTIONS (3)
  - Dyspnoea [Unknown]
  - Oxygen saturation decreased [Unknown]
  - Drug ineffective [Unknown]
